FAERS Safety Report 16809527 (Version 2)
Quarter: 2019Q4

REPORT INFORMATION
  Report Type: Spontaneous
  Country: SE (occurrence: SE)
  Receive Date: 20190916
  Receipt Date: 20191219
  Transmission Date: 20200122
  Serious: Yes (Hospitalization, Other)
  Sender: FDA-Public Use
  Company Number: SE-ASTRAZENECA-2019SF28472

PATIENT
  Age: 21025 Day
  Sex: Female

DRUGS (8)
  1. LONG ACTING INSULINE [Concomitant]
  2. ATORVASTATIN [Concomitant]
     Active Substance: ATORVASTATIN
     Dates: start: 201806
  3. FORXIGA [Suspect]
     Active Substance: DAPAGLIFLOZIN
     Indication: GLYCOSYLATED HAEMOGLOBIN INCREASED
     Route: 048
     Dates: start: 20190826, end: 20190902
  4. RAPIDLY-ACTING INSULIN [Concomitant]
  5. METFORMIN [Concomitant]
     Active Substance: METFORMIN HYDROCHLORIDE
     Dates: start: 201301
  6. FORXIGA [Suspect]
     Active Substance: DAPAGLIFLOZIN
     Indication: TYPE 1 DIABETES MELLITUS
     Route: 048
     Dates: start: 20190826, end: 20190902
  7. FORXIGA [Suspect]
     Active Substance: DAPAGLIFLOZIN
     Indication: BODY MASS INDEX ABNORMAL
     Route: 048
     Dates: start: 20190826, end: 20190902
  8. NOVORAPID [Concomitant]
     Active Substance: INSULIN ASPART
     Dates: start: 201608

REACTIONS (5)
  - Pyelitis [Unknown]
  - Gastroenteritis viral [Unknown]
  - Ureteric obstruction [Unknown]
  - Urosepsis [Unknown]
  - Diabetic ketoacidosis [Unknown]

NARRATIVE: CASE EVENT DATE: 20190903
